FAERS Safety Report 5112485-6 (Version None)
Quarter: 2006Q3

REPORT INFORMATION
  Report Type: 
  Country: None (occurrence: None)
  Receive Date: 20060731
  Receipt Date: 20060614
  Transmission Date: 20061208
  Serious: No
  Sender: FDA-Public Use
  Company Number: 2006PV015612

PATIENT
  Age: 68 Year
  Sex: Female

DRUGS (9)
  1. BYETTA [Suspect]
     Indication: DIABETES MELLITUS NON-INSULIN-DEPENDENT
     Dosage: SEE IMAGE
     Route: 058
     Dates: start: 20050101, end: 20050101
  2. BYETTA [Suspect]
     Indication: DIABETES MELLITUS NON-INSULIN-DEPENDENT
     Dosage: SEE IMAGE
     Route: 058
     Dates: start: 20050101
  3. ACTOS [Concomitant]
  4. LANTUS [Concomitant]
  5. CYMBALTA [Concomitant]
  6. PROTONIX [Concomitant]
  7. ABILIFY [Concomitant]
  8. AGGRENOX [Concomitant]
  9. ADDERALL 10 [Concomitant]

REACTIONS (4)
  - DEPRESSION [None]
  - SINUSITIS [None]
  - STRESS [None]
  - WEIGHT INCREASED [None]
